FAERS Safety Report 5214532-X (Version None)
Quarter: 2007Q1

REPORT INFORMATION
  Report Type: 
  Country: None (occurrence: None)
  Receive Date: 20070116
  Receipt Date: 20070111
  Transmission Date: 20070707
  Serious: Yes (Hospitalization, Other)
  Sender: FDA-Public Use
  Company Number: GBWYE402913NOV03

PATIENT
  Age: 48 Year
  Sex: Female

DRUGS (7)
  1. RAPAMUNE [Suspect]
     Indication: IMMUNOSUPPRESSANT DRUG LEVEL
     Dosage: SEE IMAGE
     Route: 048
     Dates: start: 20030416, end: 20030601
  2. RAPAMUNE [Suspect]
     Indication: IMMUNOSUPPRESSANT DRUG LEVEL
     Dosage: SEE IMAGE
     Route: 048
     Dates: start: 20030602, end: 20030603
  3. RANITIDINE [Concomitant]
  4. AMLODIPINE [Concomitant]
  5. ALFACALCIDOL (ALFACALCIDOL) [Concomitant]
  6. PREDNISOLONE [Concomitant]
  7. FUROSEMIDE [Concomitant]

REACTIONS (8)
  - DECREASED APPETITE [None]
  - DIARRHOEA [None]
  - DYSPNOEA [None]
  - FAECES DISCOLOURED [None]
  - HAEMODIALYSIS [None]
  - NAUSEA [None]
  - PYREXIA [None]
  - RENAL IMPAIRMENT [None]
